FAERS Safety Report 4862590-4 (Version None)
Quarter: 2005Q4

REPORT INFORMATION
  Report Type: 
  Country: None (occurrence: None)
  Receive Date: 20051219
  Receipt Date: 20051219
  Transmission Date: 20060501
  Serious: No
  Sender: FDA-Public Use
  Company Number: None

PATIENT
  Age: 65 Year
  Sex: Female
  Weight: 71.6683 kg

DRUGS (1)
  1. ACTONEL [Suspect]
     Indication: OSTEOPOROSIS
     Dosage: 35 MG  1  ONCE(PILL)
     Dates: start: 20051204

REACTIONS (3)
  - DRUG HYPERSENSITIVITY [None]
  - PAIN IN JAW [None]
  - SWELLING FACE [None]
